FAERS Safety Report 9763612 (Version 1)
Quarter: 2013Q4

REPORT INFORMATION
  Report Type: Spontaneous
  Country: US (occurrence: US)
  Receive Date: 20131216
  Receipt Date: 20131216
  Transmission Date: 20140711
  Serious: No
  Sender: FDA-Public Use
  Company Number: US-BIOGENIDEC-2013BI105300

PATIENT
  Sex: Female

DRUGS (9)
  1. TECFIDERA [Suspect]
     Indication: MULTIPLE SCLEROSIS
     Route: 048
     Dates: start: 20130723
  2. BACLOFEN [Concomitant]
  3. GLUCOPHAGE [Concomitant]
  4. GLUCOTROL [Concomitant]
  5. GLYBURIDE [Concomitant]
  6. IBUPROFEN [Concomitant]
  7. MECLIZINE HCL [Concomitant]
  8. REQUIP [Concomitant]
  9. RITALIN [Concomitant]

REACTIONS (1)
  - Multiple sclerosis relapse [Unknown]
